FAERS Safety Report 6114252-3 (Version None)
Quarter: 2009Q1

REPORT INFORMATION
  Report Type: 
  Country: None (occurrence: None)
  Receive Date: 20090312
  Receipt Date: 20080924
  Transmission Date: 20090719
  Serious: No
  Sender: FDA-Public Use
  Company Number: US-ABBOTT-08P-163-0478066-00

PATIENT
  Sex: Female
  Weight: 59.02 kg

DRUGS (33)
  1. DEPAKOTE [Suspect]
     Indication: BIPOLAR DISORDER
     Route: 048
     Dates: start: 19980101
  2. ATORVASTATIN CALCIUM [Concomitant]
     Indication: BLOOD TRIGLYCERIDES INCREASED
     Route: 048
     Dates: start: 20080701, end: 20080701
  3. RABEPRAZOLE SODIUM [Concomitant]
     Indication: GASTROOESOPHAGEAL REFLUX DISEASE
     Route: 048
  4. BRIMONIDINE TARTRATE [Concomitant]
     Indication: GLAUCOMA
     Dosage: 1 GTT IN EACH EYE
  5. EZETIMIBE [Concomitant]
     Indication: BLOOD CHOLESTEROL INCREASED
     Route: 048
  6. EZETIMIBE [Concomitant]
     Indication: BLOOD TRIGLYCERIDES INCREASED
  7. VALPROATE SODIUM [Concomitant]
     Indication: BIPOLAR DISORDER
     Route: 048
     Dates: start: 19980101
  8. LEVOTHYROXINE SODIUM [Concomitant]
     Indication: DRUG USE FOR UNKNOWN INDICATION
     Route: 048
  9. DIGOXIN [Concomitant]
     Indication: DRUG USE FOR UNKNOWN INDICATION
     Route: 048
  10. ATENOLOL [Concomitant]
     Indication: HYPERTENSION
     Route: 048
  11. NITROGLYCERIN [Concomitant]
     Indication: DRUG USE FOR UNKNOWN INDICATION
     Route: 061
  12. MORPHINE SULFATE [Concomitant]
     Indication: DRUG USE FOR UNKNOWN INDICATION
     Route: 048
  13. OXYGEN [Concomitant]
     Indication: CHRONIC OBSTRUCTIVE PULMONARY DISEASE
     Dosage: DOSE: CONTINUOUS ROUTE: NC
     Dates: start: 20050101
  14. OXYGEN [Concomitant]
     Indication: EMPHYSEMA
  15. LOTREL [Concomitant]
     Indication: DRUG USE FOR UNKNOWN INDICATION
     Dosage: FORM: 5/40 MILLIGRAMS
     Route: 048
  16. CLOPIDOGREL [Concomitant]
     Indication: DRUG USE FOR UNKNOWN INDICATION
     Route: 048
  17. ATAVAN [Concomitant]
     Indication: DRUG USE FOR UNKNOWN INDICATION
     Route: 048
  18. HYDROXYZINE [Concomitant]
     Indication: PRURITUS
     Route: 048
  19. PREGABALIN [Concomitant]
     Indication: PARAESTHESIA
     Route: 048
  20. TRAMADOL HYDROCHLORIDE [Concomitant]
     Indication: PAIN
     Route: 048
  21. TOLTERODINE TARTRATE [Concomitant]
     Indication: DRUG USE FOR UNKNOWN INDICATION
     Route: 048
  22. EPOETIN ALFA [Concomitant]
     Indication: IRON DEFICIENCY ANAEMIA
     Route: 050
  23. TERIPARATIDE [Concomitant]
     Indication: IRON DEFICIENCY ANAEMIA
     Route: 050
  24. SPIRIVA [Concomitant]
     Indication: CHRONIC OBSTRUCTIVE PULMONARY DISEASE
     Route: 055
  25. SPIRIVA [Concomitant]
     Indication: EMPHYSEMA
  26. FUROSEMIDE [Concomitant]
     Indication: FLUID RETENTION
     Dosage: UP TO 3 PILLS DAILY
     Route: 048
  27. FERROUS GLUCONATE [Concomitant]
     Indication: IRON DEFICIENCY ANAEMIA
     Route: 048
  28. MOMETASONE FUROATE [Concomitant]
     Indication: SINUS DISORDER
     Route: 050
  29. PHENAZOPYRIDINE HCL TAB [Concomitant]
     Indication: DRUG USE FOR UNKNOWN INDICATION
     Route: 048
  30. DOCUSATE SODIUM [Concomitant]
     Indication: DRUG USE FOR UNKNOWN INDICATION
     Route: 048
  31. LOMOTIL [Concomitant]
     Indication: DIARRHOEA
  32. PARACETAMOL [Concomitant]
     Indication: PAIN
     Route: 048
  33. SALBUTAMOL [Concomitant]
     Indication: ASTHMA
     Route: 055

REACTIONS (1)
  - TREMOR [None]
